FAERS Safety Report 7828573-7 (Version None)
Quarter: 2011Q4

REPORT INFORMATION
  Report Type: 
  Country: None (occurrence: None)
  Receive Date: 20111020
  Receipt Date: 20111020
  Transmission Date: 20120403
  Serious: Yes (Life-Threatening)
  Sender: FDA-Public Use
  Company Number: None

PATIENT
  Age: 80 Year
  Sex: Male
  Weight: 108.86 kg

DRUGS (2)
  1. SULFAMETHOXAZOLE AND TRIMETHOPRIM [Suspect]
     Indication: INFECTION
     Dosage: TABLET
     Route: 048
     Dates: start: 20111013, end: 20111018
  2. SULFAMETHOXAZOLE AND TRIMETHOPRIM [Suspect]
     Indication: NASAL DISORDER
     Dosage: TABLET
     Route: 048
     Dates: start: 20111013, end: 20111018

REACTIONS (6)
  - NAUSEA [None]
  - DECREASED APPETITE [None]
  - DYSPNOEA [None]
  - INSOMNIA [None]
  - SOMNOLENCE [None]
  - ABDOMINAL DISTENSION [None]
